FAERS Safety Report 15465661 (Version 2)
Quarter: 2018Q4

REPORT INFORMATION
  Report Type: Spontaneous
  Country: US (occurrence: US)
  Receive Date: 20181004
  Receipt Date: 20181019
  Transmission Date: 20190204
  Serious: No
  Sender: FDA-Public Use
  Company Number: US-GLAXOSMITHKLINE-US2018GSK178747

PATIENT
  Age: 40 Year
  Sex: Male

DRUGS (1)
  1. WELLBUTRIN [Suspect]
     Active Substance: BUPROPION HYDROCHLORIDE
     Indication: SMOKING CESSATION THERAPY
     Dosage: UNK UNK, 1D
     Route: 048
     Dates: start: 201804

REACTIONS (10)
  - Ill-defined disorder [Not Recovered/Not Resolved]
  - Malaise [Unknown]
  - Thinking abnormal [Not Recovered/Not Resolved]
  - Product use in unapproved indication [Unknown]
  - Emotional poverty [Not Recovered/Not Resolved]
  - Therapy cessation [Unknown]
  - Anger [Not Recovered/Not Resolved]
  - Weight decreased [Unknown]
  - Energy increased [Not Recovered/Not Resolved]
  - Abnormal behaviour [Not Recovered/Not Resolved]

NARRATIVE: CASE EVENT DATE: 2018
